FAERS Safety Report 8134459-3 (Version None)
Quarter: 2012Q1

REPORT INFORMATION
  Report Type: 
  Country: None (occurrence: None)
  Receive Date: 20120214
  Receipt Date: 20120214
  Transmission Date: 20120608
  Serious: Yes (Death)
  Sender: FDA-Public Use
  Company Number: None

PATIENT
  Age: 58 Year
  Sex: Male
  Weight: 88.45 kg

DRUGS (1)
  1. ANDROGEL [Suspect]
     Indication: BLOOD TESTOSTERONE DECREASED
     Dosage: 5G
     Dates: start: 20090501, end: 20110626

REACTIONS (5)
  - FALL [None]
  - PULMONARY THROMBOSIS [None]
  - PAIN IN EXTREMITY [None]
  - MUSCLE SPASMS [None]
  - LOSS OF CONSCIOUSNESS [None]
